FAERS Safety Report 10379423 (Version 4)
Quarter: 2014Q4

REPORT INFORMATION
  Report Type: Spontaneous
  Country: US (occurrence: None)
  Receive Date: 20140808
  Receipt Date: 20141126
  Transmission Date: 20150528
  Serious: Yes (Death, Hospitalization)
  Sender: FDA-Public Use
  Company Number: 2014SGN00909

PATIENT
  Age: 64 Year
  Sex: Male
  Weight: 64.5 kg

DRUGS (12)
  1. DOCUSATE SODIUM. [Concomitant]
     Active Substance: DOCUSATE SODIUM
  2. EPIPEN [Concomitant]
     Active Substance: EPINEPHRINE
  3. ACYCLOVIR. [Concomitant]
     Active Substance: ACYCLOVIR
  4. ZOFRAN (ONDANSETRON HYDROCHLORIDE) [Concomitant]
  5. PROCHLORPERAZINE (PROCHLORPERAZINE MALEATE) [Concomitant]
  6. BRENTUXIMAB VEDOTIN [Suspect]
     Active Substance: BRENTUXIMAB VEDOTIN
     Indication: DIFFUSE LARGE B-CELL LYMPHOMA
     Dosage: 1.8 MG/M2, Q21D, INTARAVENOUS
     Route: 042
     Dates: start: 20140707, end: 20140707
  7. ATIVAN [Concomitant]
     Active Substance: LORAZEPAM
  8. OMEPRAZOLE. [Concomitant]
     Active Substance: OMEPRAZOLE
  9. OXYCODONE [Concomitant]
     Active Substance: OXYCODONE
  10. LISINOPRIL. [Concomitant]
     Active Substance: LISINOPRIL
  11. SENNOSIDES A+B [Concomitant]
  12. PREDNISONE (PREDNISONE ACETATE) [Concomitant]

REACTIONS (12)
  - Renal failure [None]
  - Diffuse large B-cell lymphoma [None]
  - Abdominal pain [None]
  - Bladder spasm [None]
  - Disease progression [None]
  - Fluid intake reduced [None]
  - Pain [None]
  - Feeling abnormal [None]
  - Anaemia [None]
  - Hyponatraemia [None]
  - Pyrexia [None]
  - Infrequent bowel movements [None]

NARRATIVE: CASE EVENT DATE: 20140718
